FAERS Safety Report 6311481-0 (Version None)
Quarter: 2009Q3

REPORT INFORMATION
  Report Type: 
  Country: None (occurrence: None)
  Receive Date: 20090810
  Receipt Date: 20090729
  Transmission Date: 20100115
  Serious: Yes (Death, Hospitalization)
  Sender: FDA-Public Use
  Company Number: 2009020165

PATIENT
  Age: 61 Year
  Sex: Female

DRUGS (61)
  1. SANDOGLOBULIN [Suspect]
     Indication: AUTOIMMUNE THROMBOCYTOPENIA
     Dosage: 28 G/DAY, 6 G
     Dates: start: 20070719, end: 20070722
  2. SANDOGLOBULIN [Suspect]
     Indication: AUTOIMMUNE THROMBOCYTOPENIA
     Dosage: 28 G/DAY, 6 G
     Dates: start: 20070715
  3. BLOOD TRANSFUSION, AUXILIARY PRODUCTS (BLOOD TRANSFUSION, AUXILIARY PR [Concomitant]
  4. CEFTAZIDIM SANDOZ (CEFTAZIDIME) [Concomitant]
  5. AMIKACIN [Concomitant]
  6. VANCOMYCIN [Concomitant]
  7. CEFTRIAXONE [Concomitant]
  8. AMIKACIN [Concomitant]
  9. AZATHIOPRINE [Concomitant]
  10. BLOOD TRANSFUSION, AUXILIARY PRODUCTS (BLOOD TRANSFUSION, AUXILIARY PR [Concomitant]
  11. AZATHIOPRINE [Concomitant]
  12. VANCOMYCIN [Concomitant]
  13. EPAMIN (PHENYTOIN SODIUM) [Concomitant]
  14. DEXAMETHASONE TAB [Concomitant]
  15. DIPYRONE (METAMIZOLE SODIUM) [Concomitant]
  16. TRAMADOL HCL [Concomitant]
  17. AMBROXOL (AMBROXOL) [Concomitant]
  18. INSULIN NPH (INSULIN ISOPHANE BOVINE) [Concomitant]
  19. MEROPENEM (MEROPENEM) [Concomitant]
  20. DEXAMETHASONE TAB [Concomitant]
  21. AZATHIOPRINE [Concomitant]
  22. BLOOD TRANSFUSION, AUXILIARY PRODUCTS (BLOOD TRANSFUSION, AUXILIARY PR [Concomitant]
  23. EPAMIN (PHENYTOIN SODIUM) [Concomitant]
  24. VANCOMYCIN [Concomitant]
  25. EPAMIN (PHENYTOIN SODIUM) [Concomitant]
  26. MEROPENEM (MEROPENEM) [Concomitant]
  27. DEXAMETHASONE TAB [Concomitant]
  28. AZATHIOPRINE [Concomitant]
  29. INSULIN NPH (INSULIN ISOPHANE BOVINE) [Concomitant]
  30. BLOOD TRANSFUSION, AUXILIARY PRODUCTS (BLOOD TRANSFUSION, AUXILIARY PR [Concomitant]
  31. AZATHIOPRINE [Concomitant]
  32. EPAMIN (PHENYTOIN SODIUM) [Concomitant]
  33. INSULIN (INSULIN) [Concomitant]
  34. CIPROFLOXACIN [Concomitant]
  35. BLOOD TRANSFUSION, AUXILIARY PRODUCTS (BLOOD TRANSFUSION, AUXILIARY PR [Concomitant]
  36. MEROPENEM (MEROPENEM) [Concomitant]
  37. VANCOMYCIN [Concomitant]
  38. DIPYRONE (METAMIZOLE SODIUM) [Concomitant]
  39. BLOOD TRANSFUSION, AUXILIARY PRODUCTS (BLOOD TRANSFUSION, AUXILIARY PR [Concomitant]
  40. DEXAMETHASONE TAB [Concomitant]
  41. AZATHIOPRINE [Concomitant]
  42. INSULIN NPH (INSULIN ISOPHANE BOVINE) [Concomitant]
  43. EPAMIN (PHENYTOIN SODIUM) [Concomitant]
  44. CIPROFLOXACIN [Concomitant]
  45. CHLORPHEN.MALE.SEI (CHLORPHENAMINE MALEATE) [Concomitant]
  46. NEUPOGEN [Concomitant]
  47. MEROPENEM (MEROPENEM) [Concomitant]
  48. DEXAMETHASONE TAB [Concomitant]
  49. BLOOD TRANSFUSION, AUXILIARY PRODUCTS (BLOOD TRANSFUSION, AUXILIARY PR [Concomitant]
  50. NEUPOGEN [Concomitant]
  51. CHLORPHENIRAMINE MALEATE (CHLORPHENIRAMINE MALEATE) [Concomitant]
  52. CIPROFLOXACIN [Concomitant]
  53. CHLORPHENIRAMINE MALEATE (CHLORPHENIRAMINE MALEATE) [Concomitant]
  54. DEXAMETHASONE TAB [Concomitant]
  55. MEROPENEM (MEROPENEM) [Concomitant]
  56. INSULIN NPH (INSULIN ISOPHANE BOVINE) [Concomitant]
  57. CIPROFLOXACIN [Concomitant]
  58. DEXAMETHASONE TAB [Concomitant]
  59. CIPROFLOXACIN [Concomitant]
  60. ALBUMIN (HUMAN) [Concomitant]
  61. MEROPENEM (MEROPENEM) [Concomitant]

REACTIONS (3)
  - BONE MARROW FAILURE [None]
  - PANCYTOPENIA [None]
  - SEPSIS [None]
